FAERS Safety Report 6692228-5 (Version None)
Quarter: 2010Q2

REPORT INFORMATION
  Report Type: 
  Country: None (occurrence: None)
  Receive Date: 20100422
  Receipt Date: 20100416
  Transmission Date: 20101027
  Serious: Yes (Hospitalization)
  Sender: FDA-Public Use
  Company Number: FR-BRISTOL-MYERS SQUIBB COMPANY-15068992

PATIENT
  Age: 52 Year
  Sex: Male
  Weight: 65 kg

DRUGS (6)
  1. VIDEX [Suspect]
     Indication: HIV INFECTION
     Dosage: INTERRUPTED ON 01AUG97 RESTARTED ON 01JUL99
     Route: 048
     Dates: start: 19970101, end: 20080201
  2. VASTEN [Suspect]
     Indication: HYPERCHOLESTEROLAEMIA
     Dates: start: 19990701
  3. ZIAGEN [Suspect]
     Indication: HIV INFECTION
     Route: 048
     Dates: start: 20000807
  4. VIRAMUNE [Suspect]
     Indication: HIV INFECTION
     Route: 048
     Dates: start: 19990701
  5. PERINDOPRIL [Concomitant]
  6. ARIXTRA [Concomitant]

REACTIONS (4)
  - CHOLANGITIS CHRONIC [None]
  - CHRONIC HEPATITIS [None]
  - PORTAL VEIN THROMBOSIS [None]
  - VARICES OESOPHAGEAL [None]
